FAERS Safety Report 6122263-7 (Version None)
Quarter: 2009Q1

REPORT INFORMATION
  Report Type: 
  Country: None (occurrence: None)
  Receive Date: 20090318
  Receipt Date: 20090309
  Transmission Date: 20090719
  Serious: Yes (Hospitalization)
  Sender: FDA-Public Use
  Company Number: JP-BAYER-200910702BYL

PATIENT
  Age: 47 Year
  Sex: Male

DRUGS (9)
  1. ADALAT CC [Suspect]
     Indication: HYPERTENSION
     Dosage: TOTAL DAILY DOSE: 20 MG
     Route: 048
     Dates: start: 20090115, end: 20090212
  2. ADALAT CC [Suspect]
     Dosage: TOTAL DAILY DOSE: 80 MG
     Route: 048
     Dates: start: 20090218
  3. ADALAT CC [Suspect]
     Dosage: TOTAL DAILY DOSE: 20 MG
     Route: 048
     Dates: start: 20090218
  4. ADALAT CC [Suspect]
     Dosage: TOTAL DAILY DOSE: 40 MG
     Route: 048
     Dates: start: 20090213, end: 20090217
  5. IRBETAN [Concomitant]
     Indication: HYPERTENSION
     Route: 048
  6. OLMETEC [Concomitant]
     Route: 048
  7. LOCHOL [Concomitant]
     Route: 048
  8. ASPIRIN [Concomitant]
     Route: 048
  9. CRESTOR [Concomitant]
     Route: 048

REACTIONS (8)
  - CHILLS [None]
  - DIZZINESS [None]
  - DYSARTHRIA [None]
  - DYSPNOEA [None]
  - FLUSHING [None]
  - OEDEMA [None]
  - TACHYCARDIA [None]
  - TREMOR [None]
